FAERS Safety Report 6963144-6 (Version None)
Quarter: 2010Q3

REPORT INFORMATION
  Report Type: 
  Country: None (occurrence: None)
  Receive Date: 20100902
  Receipt Date: 20100824
  Transmission Date: 20110219
  Serious: Yes (Hospitalization)
  Sender: FDA-Public Use
  Company Number: PHHY2010JP56155

PATIENT
  Age: 80 Year
  Sex: Female

DRUGS (4)
  1. DIOVAN HCT [Suspect]
     Indication: HYPERTENSION
     Dosage: 1 DF, QD
     Route: 048
  2. ASPIRIN [Concomitant]
     Route: 048
  3. AZELASTINE HCL [Concomitant]
     Route: 048
  4. FOSAMAX [Concomitant]
     Route: 048

REACTIONS (3)
  - CEREBRAL INFARCTION [None]
  - DYSLALIA [None]
  - VIITH NERVE PARALYSIS [None]
